FAERS Safety Report 10504673 (Version 2)
Quarter: 2014Q4

REPORT INFORMATION
  Report Type: Spontaneous
  Country: PH (occurrence: PH)
  Receive Date: 20141008
  Receipt Date: 20141118
  Transmission Date: 20150528
  Serious: Yes (Hospitalization, Other)
  Sender: FDA-Public Use
  Company Number: PHHY2014PH128767

PATIENT
  Age: 49 Year
  Sex: Male
  Weight: 102 kg

DRUGS (4)
  1. PREDNISONE. [Concomitant]
     Active Substance: PREDNISONE
     Indication: TRANSPLANT REJECTION
     Dosage: 50 MG, BID
     Route: 048
     Dates: start: 20140920
  2. SIMULECT [Suspect]
     Active Substance: BASILIXIMAB
     Indication: PRODUCT USED FOR UNKNOWN INDICATION
     Dosage: UNK
     Route: 065
  3. MYFORTIC [Suspect]
     Active Substance: MYCOPHENOLATE SODIUM
     Indication: TRANSPLANT REJECTION
     Dosage: 1440 MG, QD (2 AND HALF DIVIDED DOSES)
     Route: 048
     Dates: start: 20140920, end: 20140923
  4. SANDIMMUN NEORAL [Suspect]
     Active Substance: CYCLOSPORINE
     Indication: TRANSPLANT REJECTION
     Dosage: 7MG/KBW, BID
     Route: 048
     Dates: start: 20140920, end: 20140923

REACTIONS (5)
  - Pyrexia [Recovered/Resolved]
  - Anuria [Recovered/Resolved]
  - Blood creatinine increased [Unknown]
  - Blood pressure increased [Unknown]
  - Kidney transplant rejection [Recovered/Resolved]

NARRATIVE: CASE EVENT DATE: 20140923
